FAERS Safety Report 8812142 (Version 2)
Quarter: 2014Q3

REPORT INFORMATION
  Report Type: Report from Study
  Country: US (occurrence: US)
  Receive Date: 20120927
  Receipt Date: 20140903
  Transmission Date: 20150326
  Serious: Yes (Death)
  Sender: FDA-Public Use
  Company Number: US-ROCHE-1128054

PATIENT
  Sex: Female
  Weight: 136 kg

DRUGS (1)
  1. AVASTIN [Suspect]
     Active Substance: BEVACIZUMAB
     Indication: OVARIAN CANCER
     Route: 042
     Dates: start: 20050929, end: 20051020

REACTIONS (4)
  - Pain [Unknown]
  - Ovarian cancer [Fatal]
  - Off label use [Unknown]
  - Gastric dilatation [Unknown]
